FAERS Safety Report 11797763 (Version 1)
Quarter: 2015Q4

REPORT INFORMATION
  Report Type: Spontaneous
  Country: PL (occurrence: PL)
  Receive Date: 20151203
  Receipt Date: 20151203
  Transmission Date: 20160305
  Serious: Yes (Hospitalization)
  Sender: FDA-Public Use
  Company Number: PL-BANPHARM-20154440

PATIENT
  Age: 34 Year
  Sex: Male
  Weight: 78 kg

DRUGS (1)
  1. IBUPROFEN UNKNOWN PRODUCT [Suspect]
     Active Substance: IBUPROFEN
     Indication: HEADACHE
     Dosage: DF 400 MG, ONCE,
     Route: 048
     Dates: start: 20150801, end: 20150801

REACTIONS (1)
  - Erythema [Recovering/Resolving]

NARRATIVE: CASE EVENT DATE: 20150801
